FAERS Safety Report 11043956 (Version 1)
Quarter: 2015Q2

REPORT INFORMATION
  Report Type: Spontaneous
  Country: US (occurrence: US)
  Receive Date: 20150417
  Receipt Date: 20150417
  Transmission Date: 20150821
  Serious: Yes (Other)
  Sender: FDA-Public Use
  Company Number: PHEH2015US007232

PATIENT
  Sex: Male

DRUGS (3)
  1. INVEGA [Suspect]
     Active Substance: PALIPERIDONE
     Indication: PRODUCT USED FOR UNKNOWN INDICATION
     Route: 065
  2. CLOZARIL [Suspect]
     Active Substance: CLOZAPINE
     Indication: PRODUCT USED FOR UNKNOWN INDICATION
     Dosage: 300 MG, QD
     Route: 065
  3. HALDOL [Suspect]
     Active Substance: HALOPERIDOL
     Indication: PRODUCT USED FOR UNKNOWN INDICATION
     Route: 065

REACTIONS (7)
  - Weight increased [Recovered/Resolved]
  - Mental impairment [Recovered/Resolved]
  - Drooling [Recovered/Resolved]
  - Apathy [Recovered/Resolved]
  - Obsessive-compulsive disorder [Recovered/Resolved]
  - Morbid thoughts [Recovered/Resolved]
  - Judgement impaired [Recovered/Resolved]
